FAERS Safety Report 10191032 (Version 1)
Quarter: 2014Q2

REPORT INFORMATION
  Report Type: Spontaneous
  Country: NO (occurrence: NO)
  Receive Date: 20140523
  Receipt Date: 20140523
  Transmission Date: 20141212
  Serious: Yes (Death, Other)
  Sender: FDA-Public Use
  Company Number: NO-JNJFOC-20140505673

PATIENT
  Age: 65 Year
  Sex: Female

DRUGS (5)
  1. DOXORUBICIN HYDROCHLORIDE [Suspect]
     Indication: NON-HODGKIN^S LYMPHOMA
     Dosage: DAY OF ADMINISTRATION: 8, 15, 22
     Route: 042
  2. CYCLOPHOSPHAMIDE [Suspect]
     Indication: NON-HODGKIN^S LYMPHOMA
     Dosage: DAY OF ADMINISTRATION: 15, 22, 29
     Route: 042
  3. L-ASPARAGINASE [Suspect]
     Indication: NON-HODGKIN^S LYMPHOMA
     Dosage: DAY OF ADMINISTRATION: 8-21
     Route: 042
  4. VINCRISTINE [Suspect]
     Indication: NON-HODGKIN^S LYMPHOMA
     Dosage: MAX 2.0 MG; DAY OF ADMINISTRATION: 1, 8, 15, 22, 29
     Route: 042
  5. PREDNISONE [Suspect]
     Indication: NON-HODGKIN^S LYMPHOMA
     Dosage: 1 ? 29, TAPER TO DAY 35
     Route: 048

REACTIONS (2)
  - Intracranial venous sinus thrombosis [Fatal]
  - Haematotoxicity [Unknown]
